FAERS Safety Report 25321972 (Version 1)
Quarter: 2025Q2

REPORT INFORMATION
  Report Type: Spontaneous
  Country: US (occurrence: US)
  Receive Date: 20250516
  Receipt Date: 20250516
  Transmission Date: 20250717
  Serious: No
  Sender: ROCHE
  Company Number: US-ROCHE-10000277984

PATIENT
  Age: 22 Year
  Sex: Female
  Weight: 89.81 kg

DRUGS (2)
  1. XOLAIR PFS [Suspect]
     Active Substance: OMALIZUMAB
     Indication: Urticaria
     Dosage: INJECTS (2) 150MG AUTOINJECTORS 1 TIME PER MONTH TO EQUAL 300MG
     Route: 058
     Dates: start: 202410
  2. ALLEGRA [Concomitant]
     Active Substance: FEXOFENADINE HYDROCHLORIDE
     Indication: Hypersensitivity
     Dosage: TAKES (2) 180MG TABLETS TO EQUAL 360MG
     Route: 048

REACTIONS (4)
  - Product dose omission issue [Unknown]
  - Product storage error [Unknown]
  - Device issue [Unknown]
  - Urticaria [Not Recovered/Not Resolved]

NARRATIVE: CASE EVENT DATE: 20250503
